FAERS Safety Report 19727468 (Version 2)
Quarter: 2021Q3

REPORT INFORMATION
  Report Type: Spontaneous
  Country: US (occurrence: US)
  Receive Date: 20210820
  Receipt Date: 20210921
  Transmission Date: 20211014
  Serious: No
  Sender: FDA-Public Use
  Company Number: US-BIOVITRUM-2021US7481

PATIENT
  Sex: Female

DRUGS (3)
  1. OMEPRAZOLE. [Concomitant]
     Active Substance: OMEPRAZOLE
  2. VITAMINS [Concomitant]
     Active Substance: VITAMINS
  3. DOPTELET [Suspect]
     Active Substance: AVATROMBOPAG MALEATE
     Indication: IMMUNE THROMBOCYTOPENIA
     Route: 048
     Dates: start: 20200516

REACTIONS (11)
  - Hot flush [Unknown]
  - Cough [Unknown]
  - Fatigue [Unknown]
  - Foot deformity [Unknown]
  - Arthralgia [Unknown]
  - Nail discolouration [Unknown]
  - Platelet count decreased [Unknown]
  - Heart rate increased [Unknown]
  - Peripheral swelling [Unknown]
  - Chest discomfort [Unknown]
  - Pain in extremity [Unknown]
